FAERS Safety Report 9805365 (Version 1)
Quarter: 2014Q1

REPORT INFORMATION
  Report Type: Spontaneous
  Country: US (occurrence: None)
  Receive Date: 20140108
  Receipt Date: 20140108
  Transmission Date: 20141002
  Serious: Yes (Disabling)
  Sender: FDA-Public Use
  Company Number: None

PATIENT
  Age: 66 Year
  Sex: Female
  Weight: 77.11 kg

DRUGS (1)
  1. TEMAZEPAM [Suspect]
     Indication: INSOMNIA
     Dosage: 1 PILL
     Route: 048
     Dates: start: 20100930, end: 20120728

REACTIONS (11)
  - Drug tolerance [None]
  - Neuropathy peripheral [None]
  - Frustration [None]
  - Drug withdrawal syndrome [None]
  - Pain [None]
  - Anxiety [None]
  - Gait disturbance [None]
  - Muscular weakness [None]
  - Headache [None]
  - Feeling of despair [None]
  - Impaired work ability [None]
